FAERS Safety Report 16816520 (Version 1)
Quarter: 2019Q3

REPORT INFORMATION
  Report Type: Spontaneous
  Country: US (occurrence: US)
  Receive Date: 20190917
  Receipt Date: 20190917
  Transmission Date: 20191005
  Serious: No
  Sender: FDA-Public Use
  Company Number: US-ALLERGAN-1930590US

PATIENT
  Age: 46 Year
  Sex: Female

DRUGS (3)
  1. ALLEGRA [Concomitant]
     Active Substance: FEXOFENADINE HYDROCHLORIDE
     Indication: HYPERSENSITIVITY
     Dosage: UNK, PRN
  2. LINZESS [Suspect]
     Active Substance: LINACLOTIDE
     Indication: PELVIC FLOOR DYSSYNERGIA
     Dosage: 290 ?G, QD
     Route: 048
     Dates: start: 20190725, end: 20190808
  3. LINZESS [Suspect]
     Active Substance: LINACLOTIDE
     Indication: CONSTIPATION
     Dosage: 145 ?G, QD

REACTIONS (2)
  - Off label use [Unknown]
  - Tongue coated [Not Recovered/Not Resolved]

NARRATIVE: CASE EVENT DATE: 201905
